FAERS Safety Report 24351681 (Version 1)
Quarter: 2024Q3

REPORT INFORMATION
  Report Type: Spontaneous
  Country: FR (occurrence: FR)
  Receive Date: 20240923
  Receipt Date: 20240923
  Transmission Date: 20241017
  Serious: Yes (Other)
  Sender: ROCHE
  Company Number: None

PATIENT
  Age: 66 Year
  Sex: Female

DRUGS (20)
  1. RITUXIMAB [Suspect]
     Active Substance: RITUXIMAB
     Indication: Metastases to lymph nodes
     Dosage: 2 CYCLES
     Route: 065
  2. RITUXIMAB [Suspect]
     Active Substance: RITUXIMAB
     Indication: Metastases to spine
  3. RITUXIMAB [Suspect]
     Active Substance: RITUXIMAB
     Indication: Bone lesion
  4. RITUXIMAB [Suspect]
     Active Substance: RITUXIMAB
     Indication: Grey zone lymphoma
  5. DOXORUBICIN [Suspect]
     Active Substance: DOXORUBICIN
     Indication: Bone lesion
     Dosage: 2 CYCLES
     Route: 065
  6. DOXORUBICIN [Suspect]
     Active Substance: DOXORUBICIN
     Indication: Grey zone lymphoma
  7. DOXORUBICIN [Suspect]
     Active Substance: DOXORUBICIN
     Indication: Metastases to spine
  8. DOXORUBICIN [Suspect]
     Active Substance: DOXORUBICIN
     Indication: Metastases to lymph nodes
  9. CYCLOPHOSPHAMIDE [Suspect]
     Active Substance: CYCLOPHOSPHAMIDE
     Indication: Grey zone lymphoma
     Dosage: 3 CYCLES
     Route: 065
  10. CYCLOPHOSPHAMIDE [Suspect]
     Active Substance: CYCLOPHOSPHAMIDE
     Indication: Metastases to spine
  11. CYCLOPHOSPHAMIDE [Suspect]
     Active Substance: CYCLOPHOSPHAMIDE
     Indication: Metastases to lymph nodes
  12. CYCLOPHOSPHAMIDE [Suspect]
     Active Substance: CYCLOPHOSPHAMIDE
     Indication: Bone lesion
  13. VINCRISTINE [Suspect]
     Active Substance: VINCRISTINE
     Indication: Grey zone lymphoma
     Dosage: 3 CYCLES
     Route: 065
  14. VINCRISTINE [Suspect]
     Active Substance: VINCRISTINE
     Indication: Bone lesion
  15. VINCRISTINE [Suspect]
     Active Substance: VINCRISTINE
     Indication: Metastases to lymph nodes
  16. VINCRISTINE [Suspect]
     Active Substance: VINCRISTINE
     Indication: Metastases to spine
  17. PREDNISONE [Suspect]
     Active Substance: PREDNISONE
     Indication: Grey zone lymphoma
     Dosage: 3 CYCLES
     Route: 065
  18. PREDNISONE [Suspect]
     Active Substance: PREDNISONE
     Indication: Bone lesion
  19. PREDNISONE [Suspect]
     Active Substance: PREDNISONE
     Indication: Metastases to spine
  20. PREDNISONE [Suspect]
     Active Substance: PREDNISONE
     Indication: Metastases to lymph nodes

REACTIONS (1)
  - Disease progression [Unknown]
